FAERS Safety Report 4727324-2 (Version None)
Quarter: 2005Q3

REPORT INFORMATION
  Report Type: 
  Country: None (occurrence: None)
  Receive Date: 20050728
  Receipt Date: 20050715
  Transmission Date: 20060218
  Serious: Yes (Other)
  Sender: FDA-Public Use
  Company Number: US-KINGPHARMUSA00001-K200500968

PATIENT
  Age: 35 Year
  Sex: Female
  Weight: 66 kg

DRUGS (6)
  1. CORTISPORIN OTIC SUSPENSION STERILE [Suspect]
     Indication: EAR INFECTION
     Dosage: 3 GTT, TID
     Route: 001
     Dates: start: 20020508
  2. CORTISPORIN OTIC SUSPENSION STERILE [Suspect]
     Dosage: 8 GTT, TID
     Route: 001
     Dates: end: 20020803
  3. CIPRO [Suspect]
     Indication: EAR INFECTION
     Dosage: 750 MG, UNK
     Route: 048
     Dates: start: 20020501, end: 20020101
  4. GENTIAN VIOLET [Concomitant]
     Indication: EAR INFECTION
     Route: 001
     Dates: start: 20020501, end: 20020501
  5. CSF [Concomitant]
     Indication: EAR INFECTION
     Dosage: UNK, UNK
     Route: 001
     Dates: start: 20020501, end: 20020501
  6. FLOXIN OTIC [Suspect]
     Indication: EAR INFECTION
     Route: 001

REACTIONS (11)
  - DEAFNESS UNILATERAL [None]
  - DRUG INTERACTION [None]
  - EAR INFECTION [None]
  - EAR PAIN [None]
  - EAR PRURITUS [None]
  - HEARING IMPAIRED [None]
  - OTORRHOEA [None]
  - OTOTOXICITY [None]
  - TINNITUS [None]
  - TYMPANIC MEMBRANE PERFORATION [None]
  - VERTIGO [None]
